FAERS Safety Report 8531086-0 (Version None)
Quarter: 2012Q3

REPORT INFORMATION
  Report Type: 
  Country: None (occurrence: None)
  Receive Date: 20120723
  Receipt Date: 20120709
  Transmission Date: 20120928
  Serious: Yes (Other)
  Sender: FDA-Public Use
  Company Number: FR-009507513-1207FRA000253

PATIENT

DRUGS (3)
  1. VICTRELIS [Suspect]
     Indication: HEPATITIS C
     Dosage: UNK
     Dates: start: 20120301, end: 20120501
  2. COPEGUS [Suspect]
     Indication: HEPATITIS C
     Dosage: UNK
     Dates: start: 20120201, end: 20120501
  3. PEGASYS [Suspect]
     Indication: HEPATITIS C
     Dosage: UNK
     Dates: start: 20120201, end: 20120501

REACTIONS (1)
  - RENAL FAILURE [None]
